FAERS Safety Report 25461422 (Version 2)
Quarter: 2025Q3

REPORT INFORMATION
  Report Type: Report from Study
  Country: US (occurrence: US)
  Receive Date: 20250620
  Receipt Date: 20250724
  Transmission Date: 20251020
  Serious: Yes (Hospitalization)
  Sender: OTSUKA
  Company Number: US-OTSUKA-2024_020148

PATIENT
  Age: 60 Year
  Sex: Male
  Weight: 120 kg

DRUGS (10)
  1. TOLVAPTAN [Suspect]
     Active Substance: TOLVAPTAN
     Indication: Congenital cystic kidney disease
     Dosage: 45 MG, QD (IN THE MORNING)
     Route: 048
     Dates: start: 20231119
  2. TOLVAPTAN [Suspect]
     Active Substance: TOLVAPTAN
     Dosage: 15 MG, QD (EVERY NIGHT AT BEDTIME)
     Route: 048
     Dates: start: 20231119
  3. SODIUM CHLORIDE [Concomitant]
     Active Substance: SODIUM CHLORIDE
     Indication: Product used for unknown indication
     Route: 042
  4. ASPIRIN [Concomitant]
     Active Substance: ASPIRIN
     Indication: Product used for unknown indication
     Dosage: 1 DF, DAILY (EQ ASPIRIN LOW DOSE 81 MG EC)
     Route: 048
     Dates: start: 20250617
  5. LIPITOR [Concomitant]
     Active Substance: ATORVASTATIN CALCIUM
     Indication: Product used for unknown indication
     Dosage: 1 DF, QD (EVERY NIGHT AT BEDTIME)
     Route: 048
  6. LOPRESSOR [Concomitant]
     Active Substance: METOPROLOL TARTRATE
     Indication: Product used for unknown indication
     Dosage: 1 DF, BID (EVERY 12 HOUR)
     Route: 048
  7. NITROSTAT [Concomitant]
     Active Substance: NITROGLYCERIN
     Indication: Chest pain
     Route: 060
     Dates: start: 20250617
  8. BRILINTA [Concomitant]
     Active Substance: TICAGRELOR
     Indication: Product used for unknown indication
     Dosage: 1 DF, BID (EVERY 12 HOUR)
     Route: 048
     Dates: start: 20250617
  9. ZESTRIL [Concomitant]
     Active Substance: LISINOPRIL
     Indication: Renal disorder
     Dosage: 1 DF, DAILY
     Route: 048
     Dates: start: 20230420, end: 20250620
  10. ZESTRIL [Concomitant]
     Active Substance: LISINOPRIL
     Indication: Ureteral disorder

REACTIONS (6)
  - Acute myocardial infarction [Recovered/Resolved]
  - Blood urea increased [Not Recovered/Not Resolved]
  - Blood creatinine increased [Not Recovered/Not Resolved]
  - Blood glucose increased [Recovered/Resolved]
  - Pruritus [Unknown]
  - Intentional dose omission [Recovered/Resolved]

NARRATIVE: CASE EVENT DATE: 20240429
